FAERS Safety Report 8359160-2 (Version None)
Quarter: 2012Q2

REPORT INFORMATION
  Report Type: 
  Country: None (occurrence: None)
  Receive Date: 20120511
  Receipt Date: 20120511
  Transmission Date: 20120825
  Serious: Yes (Other)
  Sender: FDA-Public Use
  Company Number: None

PATIENT
  Sex: Female

DRUGS (1)
  1. GAMUNEX-C 1GM 10ML GRIFOLSTHERAPEUTICS [Suspect]
     Indication: MYASTHENIA GRAVIS
     Dosage: 31 GRAMS ONCE DAILY FOR 5 DAYS EVERY 3 WEEKS IV
     Route: 042
     Dates: start: 20120509

REACTIONS (2)
  - INFUSION RELATED REACTION [None]
  - RASH GENERALISED [None]
